FAERS Safety Report 21010563 (Version 1)
Quarter: 2022Q2

REPORT INFORMATION
  Report Type: Spontaneous
  Country: RO (occurrence: RO)
  Receive Date: 20220627
  Receipt Date: 20220627
  Transmission Date: 20220721
  Serious: Yes (Other)
  Sender: FDA-Public Use
  Company Number: RO-BRISTOL-MYERS SQUIBB COMPANY-2022-059642

PATIENT
  Age: 53 Year

DRUGS (1)
  1. NIVOLUMAB [Suspect]
     Active Substance: NIVOLUMAB
     Indication: Non-small cell lung cancer
     Dosage: DOSE : 240MG;     FREQ : EVERY 2 WEEKS
     Route: 065
     Dates: start: 202008

REACTIONS (2)
  - Brain injury [Unknown]
  - Malignant neoplasm progression [Unknown]
